FAERS Safety Report 23075265 (Version 2)
Quarter: 2023Q4

REPORT INFORMATION
  Report Type: Spontaneous
  Country: US (occurrence: US)
  Receive Date: 20231017
  Receipt Date: 20231023
  Transmission Date: 20240110
  Serious: No
  Sender: FDA-Public Use
  Company Number: US-AMGEN-USASP2023183092

PATIENT
  Age: 61 Year
  Sex: Male
  Weight: 71.202 kg

DRUGS (1)
  1. NEULASTA [Suspect]
     Active Substance: PEGFILGRASTIM
     Indication: Prophylaxis
     Dosage: 6 MILLIGRAM, Q2WK
     Route: 065

REACTIONS (1)
  - Product communication issue [Unknown]

NARRATIVE: CASE EVENT DATE: 20230913
